FAERS Safety Report 11360797 (Version 2)
Quarter: 2015Q4

REPORT INFORMATION
  Report Type: Spontaneous
  Country: US (occurrence: US)
  Receive Date: 20150810
  Receipt Date: 20151005
  Transmission Date: 20160304
  Serious: Yes (Hospitalization)
  Sender: FDA-Public Use
  Company Number: US-ROCHE-1619360

PATIENT
  Sex: Female
  Weight: 90.8 kg

DRUGS (1)
  1. ESBRIET [Suspect]
     Active Substance: PIRFENIDONE
     Indication: IDIOPATHIC PULMONARY FIBROSIS
     Dosage: 3 CAPSULE ORAL THREE TIMES IN A DAY (TAKE 3 CAPSULES BY MOUTH THREE TIMES A DAY WITH FOOD),
     Route: 048
     Dates: start: 20150501

REACTIONS (2)
  - Myocardial infarction [Unknown]
  - Weight decreased [Unknown]
